FAERS Safety Report 15260103 (Version 1)
Quarter: 2018Q3

REPORT INFORMATION
  Report Type: Spontaneous
  Country: US (occurrence: US)
  Receive Date: 20180719
  Receipt Date: 20180719
  Transmission Date: 20181010
  Serious: Yes (Hospitalization)
  Sender: FDA-Public Use
  Company Number: None

PATIENT
  Sex: Male

DRUGS (4)
  1. OMNITROPE [Concomitant]
     Active Substance: SOMATROPIN
  2. SEVELAMER [Concomitant]
     Active Substance: SEVELAMER
  3. EPOGEN [Suspect]
     Active Substance: ERYTHROPOIETIN
     Indication: ANAEMIA
     Dosage: 2,20O UNITS TUESDAY AND FRIDAY SUBC
     Route: 058
     Dates: start: 20180116
  4. EPOGEN [Concomitant]
     Active Substance: ERYTHROPOIETIN

REACTIONS (1)
  - Dialysis [None]
